FAERS Safety Report 5318273-X (Version None)
Quarter: 2007Q2

REPORT INFORMATION
  Report Type: 
  Country: None (occurrence: None)
  Receive Date: 20070507
  Receipt Date: 20070507
  Transmission Date: 20071010
  Serious: Yes (Hospitalization)
  Sender: FDA-Public Use
  Company Number: JP-BRISTOL-MYERS SQUIBB COMPANY-13753793

PATIENT
  Sex: Female

DRUGS (2)
  1. PARAPLATIN [Suspect]
     Indication: CERVIX CARCINOMA
     Dosage: AUC=5 ON DAY 1/CYCLE
     Route: 041
  2. IRINOTECAN HCL [Concomitant]
     Indication: CERVIX CARCINOMA
     Dosage: DAYS 1, 8, 15 PER 4-WEEK CYCLE

REACTIONS (8)
  - CONDUCTION DISORDER [None]
  - DEEP VEIN THROMBOSIS [None]
  - DIARRHOEA [None]
  - HAEMOGLOBIN DECREASED [None]
  - LEUKOPENIA [None]
  - MALAISE [None]
  - NAUSEA [None]
  - VOMITING [None]
